FAERS Safety Report 9333323 (Version 1)
Quarter: 2013Q2

REPORT INFORMATION
  Report Type: Spontaneous
  Country: MY (occurrence: MY)
  Receive Date: 20130606
  Receipt Date: 20130606
  Transmission Date: 20140414
  Serious: Yes (Other)
  Sender: FDA-Public Use
  Company Number: MY-TEVA-409836ISR

PATIENT
  Age: 45 Year
  Sex: Male

DRUGS (1)
  1. TAMOXIFEN [Suspect]
     Indication: INVASIVE DUCTAL BREAST CARCINOMA
     Dosage: PLANNED DURATION OF 5 YEARS

REACTIONS (2)
  - Metastases to skin [Unknown]
  - Hot flush [Unknown]
